FAERS Safety Report 4375973-6 (Version None)
Quarter: 2004Q2

REPORT INFORMATION
  Report Type: 
  Country: None (occurrence: None)
  Receive Date: 20040611
  Receipt Date: 20040426
  Transmission Date: 20050107
  Serious: Yes (Other)
  Sender: FDA-Public Use
  Company Number: DE-AMGEN-UK073835

PATIENT
  Sex: Female
  Weight: 49 kg

DRUGS (5)
  1. NEULASTA [Suspect]
     Indication: CHEMOTHERAPY
     Route: 058
     Dates: start: 20040320, end: 20040601
  2. CYCLOPHOSPHAMIDE [Concomitant]
  3. CARBOPLATIN [Concomitant]
  4. FORTECORTIN [Concomitant]
     Dates: start: 20040320, end: 20040321
  5. AUGMENTIN [Concomitant]
     Dates: start: 20040320, end: 20040321

REACTIONS (7)
  - ANAEMIA [None]
  - BONE PAIN [None]
  - FATIGUE [None]
  - HOT FLUSH [None]
  - NIGHT SWEATS [None]
  - PANCYTOPENIA [None]
  - TACHYCARDIA [None]
